FAERS Safety Report 19933972 (Version 7)
Quarter: 2023Q1

REPORT INFORMATION
  Report Type: Report from Study
  Country: DE (occurrence: DE)
  Receive Date: 20211008
  Receipt Date: 20230221
  Transmission Date: 20230418
  Serious: Yes (Other)
  Sender: FDA-Public Use
  Company Number: DE-002147023-NVSC2021DE126523

PATIENT
  Sex: Female
  Weight: 109.5 kg

DRUGS (4)
  1. LETROZOLE [Suspect]
     Active Substance: LETROZOLE
     Indication: Breast cancer metastatic
     Dosage: 2.5 MILLIGRAM, QD
     Route: 048
     Dates: start: 20191219, end: 20200501
  2. KISQALI [Suspect]
     Active Substance: RIBOCICLIB
     Indication: Breast cancer metastatic
     Dosage: 600 MILLIGRAM, QD
     Route: 048
     Dates: start: 20191219, end: 20200319
  3. KISQALI [Suspect]
     Active Substance: RIBOCICLIB
     Dosage: 400 MILLIGRAM, QD/START DATE: 20-MAR-2020
     Route: 048
     Dates: start: 20200320, end: 20210724
  4. KISQALI [Suspect]
     Active Substance: RIBOCICLIB
     Dosage: 400 MILLIGRAM, QD/ START DATE: 31-JUL-2021
     Route: 048
     Dates: start: 20210731, end: 20220306

REACTIONS (9)
  - Hypertensive crisis [Recovered/Resolved]
  - Leukopenia [Recovered/Resolved]
  - Periodontitis [Recovered/Resolved]
  - Dental caries [Recovered/Resolved]
  - Dyspnoea [Unknown]
  - Arthralgia [Not Recovered/Not Resolved]
  - Dry mouth [Unknown]
  - Vulval ulceration [Recovered/Resolved]
  - Anaemia [Recovered/Resolved]

NARRATIVE: CASE EVENT DATE: 20200101
